FAERS Safety Report 5857158-7 (Version None)
Quarter: 2008Q3

REPORT INFORMATION
  Report Type: 
  Country: None (occurrence: None)
  Receive Date: 20080825
  Receipt Date: 20080818
  Transmission Date: 20090109
  Serious: Yes (Other)
  Sender: FDA-Public Use
  Company Number: PHEH2008US07283

PATIENT
  Sex: Male

DRUGS (4)
  1. TEKTURNA [Suspect]
     Indication: HYPERTENSION
     Dosage: UNK, UNK
  2. CYCLOSPORINE [Concomitant]
     Indication: HEART TRANSPLANT
     Dosage: UNK, UNK
  3. CELLCEPT [Concomitant]
     Indication: HEART TRANSPLANT
     Dosage: UNK, UNK
  4. PREDNISONE TAB [Concomitant]
     Indication: HEART TRANSPLANT
     Dosage: UNK, UNK

REACTIONS (3)
  - BLOOD CREATININE INCREASED [None]
  - BLOOD UREA INCREASED [None]
  - RENAL FAILURE [None]
